FAERS Safety Report 6874764-1 (Version None)
Quarter: 2010Q3

REPORT INFORMATION
  Report Type: 
  Country: None (occurrence: None)
  Receive Date: 20100723
  Receipt Date: 20100719
  Transmission Date: 20110219
  Serious: Yes (Hospitalization)
  Sender: FDA-Public Use
  Company Number: 2010SP039400

PATIENT
  Age: 53 Year
  Sex: Female
  Weight: 59 kg

DRUGS (11)
  1. TEMOZOLOMIDE [Suspect]
     Indication: OVARIAN CANCER
     Dosage: PO
     Route: 048
     Dates: start: 20100624, end: 20100628
  2. ABT-888 [Suspect]
     Indication: OVARIAN CANCER
     Dosage: 40 MG;QD;PO
     Route: 048
     Dates: start: 20100624, end: 20100628
  3. VICODIN [Concomitant]
  4. TYLOX [Concomitant]
  5. CYCLOBENZAPRINE [Concomitant]
  6. HYDROCHLORIDE [Concomitant]
  7. GABAPENTIN [Concomitant]
  8. LORAZEPAM [Concomitant]
  9. PROCHLORPERAZINE EDISYLATE [Concomitant]
  10. PROMETHAZINE [Concomitant]
  11. RANITIDINE [Concomitant]

REACTIONS (5)
  - DEHYDRATION [None]
  - DIARRHOEA [None]
  - DIZZINESS [None]
  - LIVER FUNCTION TEST ABNORMAL [None]
  - URINARY TRACT INFECTION [None]
